FAERS Safety Report 20296906 (Version 1)
Quarter: 2022Q1

REPORT INFORMATION
  Report Type: Spontaneous
  Country: DE (occurrence: DE)
  Receive Date: 20220105
  Receipt Date: 20220105
  Transmission Date: 20220423
  Serious: Yes (Hospitalization)
  Sender: FDA-Public Use
  Company Number: DE-ADRED-07299-01

PATIENT
  Age: 69 Year
  Sex: Female
  Weight: 95 kg

DRUGS (4)
  1. GEMCITABINE [Suspect]
     Active Substance: GEMCITABINE
     Indication: Product used for unknown indication
     Dosage: 2400 MG, ACCORDING TO SCHEME, SOLUTION FOR INJECTION / INFUSION ()
     Route: 042
  2. CISPLATIN [Suspect]
     Active Substance: CISPLATIN
     Indication: Product used for unknown indication
     Dosage: 140 MG, ACCORDING TO SCHEME, SOLUTION FOR INJECTION / INFUSION ()
     Route: 042
  3. Novaminsulfon Drops-1A Pharma [Concomitant]
     Indication: Product used for unknown indication
     Dosage: 500 MG / ML, IF NECESSARY, DROPS ()
     Route: 048
  4. ENOXAPARIN [Concomitant]
     Active Substance: ENOXAPARIN
     Indication: Product used for unknown indication
     Dosage: 40 MG / 0.4ML, 0-0-1-0, PRE-FILLED SYRINGES ()
     Route: 058

REACTIONS (1)
  - Vaginal haemorrhage [Recovering/Resolving]

NARRATIVE: CASE EVENT DATE: 20210209
